FAERS Safety Report 9412108 (Version 3)
Quarter: 2013Q3

REPORT INFORMATION
  Report Type: Spontaneous
  Country: US (occurrence: None)
  Receive Date: 20130415
  Receipt Date: 20130927
  Transmission Date: 20140515
  Serious: Yes (Hospitalization)
  Sender: FDA-Public Use
  Company Number: ACO_31907_2012

PATIENT
  Age: 60 Year
  Sex: Female
  Weight: 56.7 kg

DRUGS (2)
  1. AMPYRA [Suspect]
     Indication: GAIT DISTURBANCE
     Route: 048
     Dates: end: 201208
  2. AVONEX (INTERFERON BETA 1A) [Concomitant]

REACTIONS (3)
  - Kidney infection [None]
  - Urinary tract infection [None]
  - Drug ineffective [None]
